FAERS Safety Report 10969855 (Version 3)
Quarter: 2015Q2

REPORT INFORMATION
  Report Type: Spontaneous
  Country: US (occurrence: US)
  Receive Date: 20150331
  Receipt Date: 20150424
  Transmission Date: 20150821
  Serious: No
  Sender: FDA-Public Use
  Company Number: US-PFIZER INC-2015107171

PATIENT
  Age: 77 Year
  Sex: Female

DRUGS (1)
  1. LYRICA [Suspect]
     Active Substance: PREGABALIN
     Indication: NEUROPATHY PERIPHERAL
     Dosage: UNK
     Dates: start: 201406

REACTIONS (12)
  - Drug hypersensitivity [Unknown]
  - Fatigue [Unknown]
  - Throat tightness [Unknown]
  - Dyspnoea [Unknown]
  - Vision blurred [Unknown]
  - Drug ineffective [Unknown]
  - Dizziness [Unknown]
  - Diarrhoea [Unknown]
  - Stomatitis [Unknown]
  - Headache [Unknown]
  - Heart rate increased [Unknown]
  - Hypertension [Unknown]
